FAERS Safety Report 5871517-8 (Version None)
Quarter: 2008Q3

REPORT INFORMATION
  Report Type: 
  Country: None (occurrence: None)
  Receive Date: 20080905
  Receipt Date: 20080321
  Transmission Date: 20090109
  Serious: No
  Sender: FDA-Public Use
  Company Number: A0715020A

PATIENT
  Sex: Male

DRUGS (6)
  1. REQUIP [Suspect]
     Indication: RESTLESS LEGS SYNDROME
     Dosage: 4MG AT NIGHT
     Route: 048
     Dates: start: 20061201
  2. RESTORIL [Suspect]
     Indication: SLEEP DISORDER
     Dosage: 15MG AT NIGHT
     Route: 048
  3. REMERON [Suspect]
  4. TOPROL-XL [Suspect]
  5. AMBIEN [Suspect]
     Indication: SLEEP DISORDER
     Dosage: 10MG AT NIGHT
     Route: 048
     Dates: end: 20080122
  6. LUNESTA [Suspect]
     Indication: SLEEP DISORDER
     Dosage: 3MG AT NIGHT
     Route: 048
     Dates: start: 20080123

REACTIONS (9)
  - ADVERSE EVENT [None]
  - ARTHRALGIA [None]
  - DRUG INTERACTION [None]
  - FATIGUE [None]
  - MUSCLE TIGHTNESS [None]
  - MYALGIA [None]
  - PAIN [None]
  - SLEEP DISORDER [None]
  - WITHDRAWAL SYNDROME [None]
